FAERS Safety Report 8611763-3 (Version None)
Quarter: 2012Q3

REPORT INFORMATION
  Report Type: 
  Country: None (occurrence: None)
  Receive Date: 20120822
  Receipt Date: 20101001
  Transmission Date: 20120928
  Serious: Yes (Other)
  Sender: FDA-Public Use
  Company Number: PT-ROCHE-1099042

PATIENT
  Sex: Female

DRUGS (2)
  1. VINORELBINE [Suspect]
     Indication: BREAST CANCER METASTATIC
  2. XELODA [Suspect]
     Indication: BREAST CANCER METASTATIC

REACTIONS (13)
  - SKIN TOXICITY [None]
  - HAEMATOTOXICITY [None]
  - TOXICITY TO VARIOUS AGENTS [None]
  - DISEASE PROGRESSION [None]
  - DIARRHOEA [None]
  - MUCOSAL INFLAMMATION [None]
  - VOMITING [None]
  - GASTROINTESTINAL TOXICITY [None]
  - WEIGHT DECREASED [None]
  - ADVERSE REACTION [None]
  - THERAPEUTIC PRODUCT INEFFECTIVE [None]
  - PALMAR-PLANTAR ERYTHRODYSAESTHESIA SYNDROME [None]
  - UNEVALUABLE EVENT [None]
